FAERS Safety Report 13029746 (Version 1)
Quarter: 2016Q4

REPORT INFORMATION
  Report Type: Spontaneous
  Country: US (occurrence: US)
  Receive Date: 20161215
  Receipt Date: 20161215
  Transmission Date: 20170207
  Serious: No
  Sender: FDA-Public Use
  Company Number: US-BAYER-2016-236036

PATIENT
  Sex: Male

DRUGS (1)
  1. MIRALAX [Suspect]
     Active Substance: POLYETHYLENE GLYCOL 3350
     Indication: GASTROINTESTINAL DISORDER
     Dosage: UNK

REACTIONS (7)
  - Nausea [Unknown]
  - Drug prescribing error [Unknown]
  - Dizziness [Unknown]
  - Feeling abnormal [Unknown]
  - Poor quality sleep [Unknown]
  - Malaise [Unknown]
  - Circumstance or information capable of leading to medication error [Unknown]
